FAERS Safety Report 5003810-5 (Version None)
Quarter: 2006Q2

REPORT INFORMATION
  Report Type: 
  Country: None (occurrence: None)
  Receive Date: 20060515
  Receipt Date: 20060503
  Transmission Date: 20061013
  Serious: Yes (Hospitalization, Other)
  Sender: FDA-Public Use
  Company Number: 2006060645

PATIENT
  Age: 71 Year
  Sex: Male
  Weight: 112 kg

DRUGS (2)
  1. LYRICA [Suspect]
     Indication: PAIN
     Dosage: 600 MG (1 D), ORAL
     Route: 048
  2. CARBAMAZEPINE [Concomitant]

REACTIONS (13)
  - BALANCE DISORDER [None]
  - C-REACTIVE PROTEIN INCREASED [None]
  - CEREBRAL ATROPHY [None]
  - CEREBRAL DISORDER [None]
  - CEREBROVASCULAR DISORDER [None]
  - ELECTROCARDIOGRAM QT PROLONGED [None]
  - GENERAL PHYSICAL HEALTH DETERIORATION [None]
  - HYPOKALAEMIA [None]
  - INAPPROPRIATE ANTIDIURETIC HORMONE SECRETION [None]
  - LABORATORY TEST ABNORMAL [None]
  - MICROANGIOPATHY [None]
  - OEDEMA PERIPHERAL [None]
  - TOOTH DISORDER [None]
